FAERS Safety Report 9091471 (Version 2)
Quarter: 2013Q2

REPORT INFORMATION
  Report Type: Report from Study
  Country: US (occurrence: US)
  Receive Date: 20130201
  Receipt Date: 20130530
  Transmission Date: 20140414
  Serious: Yes (Hospitalization, Other)
  Sender: FDA-Public Use
  Company Number: US-ABBOTT-12P-163-1026360-00

PATIENT
  Sex: Female
  Weight: 59.02 kg

DRUGS (9)
  1. HUMIRA [Suspect]
     Indication: PSORIATIC ARTHROPATHY
  2. HUMIRA [Suspect]
     Indication: PSORIASIS
  3. ROXICODONE [Concomitant]
     Indication: PAIN
  4. VALIUM [Concomitant]
     Indication: PAIN
  5. OXYCODONE [Concomitant]
     Indication: PAIN
  6. OXYCODONE [Concomitant]
     Indication: PSORIATIC ARTHROPATHY
  7. OXYCODONE [Concomitant]
     Indication: RHEUMATOID ARTHRITIS
  8. DIAZEPAM [Concomitant]
     Indication: ANXIETY
  9. DIAZEPAM [Concomitant]
     Indication: MUSCLE SPASMS

REACTIONS (8)
  - Eye pain [Recovered/Resolved]
  - Aneurysm [Unknown]
  - Skin cancer [Not Recovered/Not Resolved]
  - Drug ineffective [Not Recovered/Not Resolved]
  - Synovial cyst [Not Recovered/Not Resolved]
  - Arthralgia [Not Recovered/Not Resolved]
  - Malignant melanoma [Recovered/Resolved]
  - Drug effect decreased [Not Recovered/Not Resolved]
